FAERS Safety Report 24922529 (Version 5)
Quarter: 2025Q4

REPORT INFORMATION
  Report Type: Spontaneous
  Country: JP (occurrence: JP)
  Receive Date: 20250204
  Receipt Date: 20251227
  Transmission Date: 20260118
  Serious: Yes (Hospitalization, Other)
  Sender: GALDERMA
  Company Number: JP-GALDERMA-JP2025001287

PATIENT

DRUGS (4)
  1. NEMOLIZUMAB [Suspect]
     Active Substance: NEMOLIZUMAB
     Indication: Neurodermatitis
     Dosage: 60 MILLIGRAM, EVERY 4 WEEKS
     Route: 058
     Dates: start: 20240813, end: 20240813
  2. NEMOLIZUMAB [Suspect]
     Active Substance: NEMOLIZUMAB
     Dosage: 30 MILLIGRAM, EVERY 4 WEEKS
     Route: 058
     Dates: start: 20240917, end: 20240917
  3. DIFLUCORTOLONE VALERATE [Concomitant]
     Active Substance: DIFLUCORTOLONE VALERATE
     Indication: Neurodermatitis
     Dosage: UNK
     Route: 061
     Dates: start: 20240806
  4. BETAMETHASONE DIPROPIONATE [Concomitant]
     Active Substance: BETAMETHASONE DIPROPIONATE
     Indication: Neurodermatitis
     Dosage: UNK
     Route: 061
     Dates: start: 202404, end: 20250223

REACTIONS (1)
  - Pemphigoid [Recovering/Resolving]

NARRATIVE: CASE EVENT DATE: 20240917
